FAERS Safety Report 8388868-8 (Version None)
Quarter: 2012Q2

REPORT INFORMATION
  Report Type: 
  Country: None (occurrence: None)
  Receive Date: 20120528
  Receipt Date: 20120518
  Transmission Date: 20120825
  Serious: Yes (Hospitalization, Other)
  Sender: FDA-Public Use
  Company Number: US-BIOGENIDEC-2012BI017675

PATIENT
  Sex: Female

DRUGS (1)
  1. AVONEX [Suspect]
     Indication: MULTIPLE SCLEROSIS
     Route: 030
     Dates: end: 20120427

REACTIONS (15)
  - CARDIOVASCULAR DISORDER [None]
  - APHAGIA [None]
  - PNEUMONIA [None]
  - FALL [None]
  - INFECTION [None]
  - DIABETES MELLITUS [None]
  - HYPOAESTHESIA [None]
  - PARAESTHESIA [None]
  - ANKLE FRACTURE [None]
  - ARTHRALGIA [None]
  - RENAL IMPAIRMENT [None]
  - MYOCARDIAL INFARCTION [None]
  - BLOOD GLUCOSE FLUCTUATION [None]
  - GAIT DISTURBANCE [None]
  - MUSCLE SPASMS [None]
